FAERS Safety Report 10036549 (Version 2)
Quarter: 2016Q1

REPORT INFORMATION
  Report Type: Report from Study
  Country: US (occurrence: US)
  Receive Date: 20140326
  Receipt Date: 20160201
  Transmission Date: 20160525
  Serious: Yes (Other)
  Sender: FDA-Public Use
  Company Number: US-ROCHE-1370104

PATIENT
  Age: 14 Year
  Sex: Female

DRUGS (7)
  1. XOLAIR [Suspect]
     Active Substance: OMALIZUMAB
     Indication: ASTHMA
     Route: 058
     Dates: start: 20140306, end: 20140320
  2. XOLAIR [Suspect]
     Active Substance: OMALIZUMAB
     Indication: RHINITIS ALLERGIC
     Route: 058
  3. LORATADINE. [Concomitant]
     Active Substance: LORATADINE
     Route: 065
  4. VENTOLIN HFA [Concomitant]
     Active Substance: ALBUTEROL SULFATE
     Dosage: 2 PUFF Q4-6HR AS NEEDED
     Route: 065
  5. FLONASE (UNITED STATES) [Concomitant]
     Dosage: SPRAYS EACH NOSTRIL
     Route: 065
  6. SINGULAIR [Concomitant]
     Active Substance: MONTELUKAST SODIUM
     Route: 065
  7. ADVAIR HFA [Concomitant]
     Active Substance: FLUTICASONE PROPIONATE\SALMETEROL XINAFOATE
     Dosage: 2 PUFFS
     Route: 065

REACTIONS (3)
  - Oropharyngeal pain [Unknown]
  - Throat tightness [Recovered/Resolved]
  - Conversion disorder [Unknown]

NARRATIVE: CASE EVENT DATE: 20140320
